FAERS Safety Report 14864314 (Version 1)
Quarter: 2018Q2

REPORT INFORMATION
  Report Type: Report from Study
  Country: US (occurrence: US)
  Receive Date: 20180508
  Receipt Date: 20180508
  Transmission Date: 20180711
  Serious: Yes (Other)
  Sender: FDA-Public Use
  Company Number: US-BAYER-2018-085472

PATIENT
  Age: 74 Year
  Sex: Female
  Weight: 154.2 kg

DRUGS (3)
  1. ADEMPAS [Suspect]
     Active Substance: RIOCIGUAT
     Indication: PULMONARY ARTERIAL HYPERTENSION
     Dosage: 1.5 MG, TID
     Route: 048
  2. ADEMPAS [Suspect]
     Active Substance: RIOCIGUAT
     Indication: PULMONARY ARTERIAL HYPERTENSION
     Dosage: UNK
     Dates: start: 20180314
  3. APIXABAN [Concomitant]
     Active Substance: APIXABAN
     Dosage: UNK

REACTIONS (6)
  - Faecaloma [Recovering/Resolving]
  - Constipation [Not Recovered/Not Resolved]
  - Dyspnoea [Recovering/Resolving]
  - Headache [Recovering/Resolving]
  - Depression [Recovering/Resolving]
  - Chest pain [Unknown]

NARRATIVE: CASE EVENT DATE: 2018
